FAERS Safety Report 25725863 (Version 1)
Quarter: 2025Q3

REPORT INFORMATION
  Report Type: Spontaneous
  Country: EU (occurrence: EU)
  Receive Date: 20250826
  Receipt Date: 20250826
  Transmission Date: 20251020
  Serious: Yes (Other)
  Sender: RANBAXY
  Company Number: EU-AFSSAPS-NC2025000735

PATIENT
  Age: 74 Year
  Sex: Male
  Weight: 95 kg

DRUGS (8)
  1. PANTOPRAZOLE [Suspect]
     Active Substance: PANTOPRAZOLE
     Indication: Gastrointestinal haemorrhage
     Dosage: 40 MILLIGRAM, DAILY
     Route: 040
     Dates: start: 20250210, end: 20250304
  2. PANTOPRAZOLE [Suspect]
     Active Substance: PANTOPRAZOLE
     Dosage: 200 MILLIGRAM, DAILY
     Route: 040
     Dates: start: 20250305, end: 20250306
  3. PANTOPRAZOLE [Suspect]
     Active Substance: PANTOPRAZOLE
     Dosage: 40 MILLIGRAM, DAILY
     Route: 040
     Dates: start: 20250307, end: 20250313
  4. PIPERACILLIN SODIUM\TAZOBACTAM SODIUM [Suspect]
     Active Substance: PIPERACILLIN SODIUM\TAZOBACTAM SODIUM
     Indication: Enterococcal bacteraemia
     Dosage: 16 GRAM, DAILY
     Route: 040
     Dates: start: 20250212, end: 20250213
  5. PIPERACILLIN SODIUM\TAZOBACTAM SODIUM [Suspect]
     Active Substance: PIPERACILLIN SODIUM\TAZOBACTAM SODIUM
     Dosage: 16 GRAM, DAILY
     Route: 065
     Dates: start: 20250218, end: 20250225
  6. AMOXICILLIN\CLAVULANIC ACID [Suspect]
     Active Substance: AMOXICILLIN\CLAVULANIC ACID
     Indication: Enterococcal bacteraemia
     Dosage: 6 GRAM, DAILY
     Route: 040
     Dates: start: 20250214, end: 20250217
  7. CEFEPIME [Suspect]
     Active Substance: CEFEPIME HYDROCHLORIDE
     Indication: Pneumonia pseudomonal
     Dosage: 6 GRAM, DAILY
     Route: 040
     Dates: start: 20250225, end: 20250226
  8. CEFTAZIDIME [Suspect]
     Active Substance: CEFTAZIDIME
     Indication: Pneumonia pseudomonal
     Dosage: 6 GRAM, DAILY
     Route: 040
     Dates: start: 20250226, end: 20250303

REACTIONS (1)
  - Clostridium difficile colitis [Recovered/Resolved]

NARRATIVE: CASE EVENT DATE: 20250310
